FAERS Safety Report 9661325 (Version 3)
Quarter: 2013Q4

REPORT INFORMATION
  Report Type: Spontaneous
  Country: JP (occurrence: JP)
  Receive Date: 20131031
  Receipt Date: 20131115
  Transmission Date: 20140711
  Serious: Yes (Hospitalization, Other)
  Sender: FDA-Public Use
  Company Number: JP-TAKEDA-TCI2013A04884

PATIENT
  Age: 44 Year
  Sex: Female
  Weight: 50 kg

DRUGS (4)
  1. TAKEPRON OD TABLETS 30 [Suspect]
     Indication: HELICOBACTER INFECTION
     Dosage: 30 MG, BID
     Route: 048
     Dates: start: 20110613, end: 20110620
  2. CLARITH [Suspect]
     Indication: HELICOBACTER INFECTION
     Dosage: 400 MG, BID
     Route: 048
     Dates: start: 20110613, end: 20110620
  3. SAWACILLIN [Suspect]
     Indication: HELICOBACTER INFECTION
     Dosage: 750 MG, BID
     Route: 048
     Dates: start: 20110613, end: 20110620
  4. BIOFERMIN R [Concomitant]
     Indication: PROPHYLAXIS
     Dosage: 1 G, BID
     Route: 048
     Dates: start: 20110613, end: 20110620

REACTIONS (1)
  - Oculomucocutaneous syndrome [Recovered/Resolved]
